FAERS Safety Report 9540376 (Version 2)
Quarter: 2013Q3

REPORT INFORMATION
  Report Type: Spontaneous
  Country: JP (occurrence: JP)
  Receive Date: 20130920
  Receipt Date: 20130927
  Transmission Date: 20140515
  Serious: Yes (Other)
  Sender: FDA-Public Use
  Company Number: JP-ASTRAZENECA-2013SE69344

PATIENT
  Age: 64 Year
  Sex: Female
  Weight: 42 kg

DRUGS (7)
  1. ANAPEINE [Suspect]
     Route: 053
  2. DIPRIVAN [Concomitant]
     Indication: INDUCTION OF ANAESTHESIA
     Route: 042
  3. DIPRIVAN [Concomitant]
     Indication: INDUCTION OF ANAESTHESIA
     Route: 042
  4. FENTANYL [Concomitant]
     Indication: INDUCTION OF ANAESTHESIA
  5. REMIFENTANIL [Concomitant]
     Indication: INDUCTION OF ANAESTHESIA
  6. REMIFENTANIL [Concomitant]
     Indication: INDUCTION OF ANAESTHESIA
     Route: 042
  7. ROCURONIUM BROMIDE [Concomitant]
     Indication: ENDOTRACHEAL INTUBATION

REACTIONS (2)
  - Delayed recovery from anaesthesia [Recovered/Resolved]
  - Wrong technique in drug usage process [Unknown]
